FAERS Safety Report 22647908 (Version 1)
Quarter: 2023Q2

REPORT INFORMATION
  Report Type: Spontaneous
  Country: US (occurrence: US)
  Receive Date: 20230628
  Receipt Date: 20230628
  Transmission Date: 20230721
  Serious: No
  Sender: FDA-Public Use
  Company Number: US-ZENPEP LLC-2023AIMT00604

PATIENT

DRUGS (4)
  1. ZENPEP [Suspect]
     Active Substance: PANCRELIPASE AMYLASE\PANCRELIPASE LIPASE\PANCRELIPASE PROTEASE
     Indication: Pancreatic failure
     Dosage: 40 000 USP UNITS, 8X/DAY
     Route: 048
     Dates: start: 2013
  2. ZENPEP [Suspect]
     Active Substance: PANCRELIPASE AMYLASE\PANCRELIPASE LIPASE\PANCRELIPASE PROTEASE
     Dosage: 40 000 USP UNITS, ONCE, LAST DOSE PRIOR EVENTS
     Route: 048
  3. ESTRADIOL [Concomitant]
     Active Substance: ESTRADIOL
     Indication: Hysterectomy
     Dosage: 1 MG, 1X/DAY
  4. MCT [Concomitant]
     Indication: Nutritional supplementation

REACTIONS (14)
  - Asthenia [Unknown]
  - Brain fog [Unknown]
  - Thinking abnormal [Unknown]
  - Muscular weakness [Unknown]
  - Alopecia [Unknown]
  - Fatigue [Unknown]
  - Eating disorder [Unknown]
  - Gastrointestinal pain [Unknown]
  - Muscle spasms [Not Recovered/Not Resolved]
  - Lactose intolerance [Not Recovered/Not Resolved]
  - Therapeutic product effect decreased [Not Recovered/Not Resolved]
  - Weight decreased [Not Recovered/Not Resolved]
  - Abdominal distension [Unknown]
  - Diarrhoea [Unknown]
